FAERS Safety Report 9049503 (Version 1)
Quarter: 2013Q1

REPORT INFORMATION
  Report Type: Spontaneous
  Country: US (occurrence: US)
  Receive Date: 20130205
  Receipt Date: 20130205
  Transmission Date: 20140127
  Serious: Yes (Other)
  Sender: FDA-Public Use
  Company Number: US-BAYER-2013-014237

PATIENT
  Age: 95 Year
  Sex: Female

DRUGS (3)
  1. ALEVE CAPLET/TABLET,MIDOL EXTENDED RELIEF CAPLET [Suspect]
     Dosage: UNK
     Dates: end: 20130130
  2. ONE A DAY [B12,D2,B3,B6,RETINOL,B2,NA+ ASCORB,B1 MONONITR] [Concomitant]
  3. TUMS [CALCIUM CARBONATE] [Concomitant]

REACTIONS (5)
  - Pollakiuria [Not Recovered/Not Resolved]
  - Skin discolouration [Not Recovered/Not Resolved]
  - Haemorrhage subcutaneous [Not Recovered/Not Resolved]
  - Muscle spasms [None]
  - Drug administration error [None]
